FAERS Safety Report 8481214-0 (Version None)
Quarter: 2012Q2

REPORT INFORMATION
  Report Type: 
  Country: None (occurrence: None)
  Receive Date: 20120618
  Receipt Date: 20120607
  Transmission Date: 20120825
  Serious: Yes (Hospitalization, Other)
  Sender: FDA-Public Use
  Company Number: 2012SP031275

PATIENT
  Sex: Male

DRUGS (16)
  1. ATIVAN [Suspect]
     Indication: PRODUCT USED FOR UNKNOWN INDICATION
     Dates: start: 20100901, end: 20100901
  2. VISTARIL [Suspect]
     Indication: PRODUCT USED FOR UNKNOWN INDICATION
     Dates: start: 20100901, end: 20100901
  3. EXELON [Suspect]
     Indication: DEMENTIA WITH LEWY BODIES
     Dates: start: 20100901, end: 20100901
  4. LAMICTAL [Suspect]
     Indication: DEMENTIA WITH LEWY BODIES
     Dates: start: 20100901, end: 20100901
  5. TRAZODONE HCL [Suspect]
     Indication: DEPRESSION
     Dates: start: 20100901, end: 20100901
  6. ASPIRIN [Suspect]
     Indication: ANTICOAGULANT THERAPY
     Dates: start: 20100901, end: 20100901
  7. NEURONTIN [Suspect]
     Indication: DEMENTIA WITH LEWY BODIES
     Dosage: 400 MG;QD; 300 MG;TID; 100 MG;BID; 200 MG; 300 MG;TID; 200 MG;
     Dates: start: 20100912
  8. NEURONTIN [Suspect]
     Indication: DEMENTIA WITH LEWY BODIES
     Dosage: 400 MG;QD; 300 MG;TID; 100 MG;BID; 200 MG; 300 MG;TID; 200 MG;
     Dates: start: 20100908
  9. NEURONTIN [Suspect]
     Indication: DEMENTIA WITH LEWY BODIES
     Dosage: 400 MG;QD; 300 MG;TID; 100 MG;BID; 200 MG; 300 MG;TID; 200 MG;
     Dates: start: 20100917
  10. NEURONTIN [Suspect]
     Indication: DEMENTIA WITH LEWY BODIES
     Dosage: 400 MG;QD; 300 MG;TID; 100 MG;BID; 200 MG; 300 MG;TID; 200 MG;
     Dates: start: 20100918
  11. NEURONTIN [Suspect]
     Indication: DEMENTIA WITH LEWY BODIES
     Dosage: 400 MG;QD; 300 MG;TID; 100 MG;BID; 200 MG; 300 MG;TID; 200 MG;
     Dates: start: 20100907, end: 20100901
  12. NEURONTIN [Suspect]
     Indication: DEMENTIA WITH LEWY BODIES
     Dosage: 400 MG;QD; 300 MG;TID; 100 MG;BID; 200 MG; 300 MG;TID; 200 MG;
     Dates: start: 20100914
  13. REMERON [Suspect]
     Indication: DEPRESSION
     Dates: start: 20100901, end: 20100901
  14. NAMENDA [Suspect]
     Indication: DEMENTIA WITH LEWY BODIES
     Dates: start: 20100901, end: 20100901
  15. TEMAZEPAM [Suspect]
     Indication: SLEEP DISORDER
     Dates: start: 20100901, end: 20100901
  16. ACETAMINOPHEN [Concomitant]

REACTIONS (4)
  - DRUG INTERACTION [None]
  - DEMENTIA WITH LEWY BODIES [None]
  - FEELING ABNORMAL [None]
  - ABNORMAL BEHAVIOUR [None]
